FAERS Safety Report 25020318 (Version 1)
Quarter: 2025Q1

REPORT INFORMATION
  Report Type: Report from Study
  Country: CA (occurrence: CA)
  Receive Date: 20250227
  Receipt Date: 20250227
  Transmission Date: 20250409
  Serious: Yes (Hospitalization, Other)
  Sender: VERITY PHARMACEUTICALS INC.
  Company Number: CA-VER-202500037

PATIENT
  Age: 89 Year
  Sex: Male

DRUGS (9)
  1. TRELSTAR [Suspect]
     Active Substance: TRIPTORELIN PAMOATE
     Indication: Prostate cancer
     Dosage: POWDER FOR PROLONGED-RELEASE SUSPENSION FOR INJECT: DRUG START DATE: 10-JAN-2024; DRUG STOPPED: 10-J
     Route: 030
  2. TRELSTAR [Suspect]
     Active Substance: TRIPTORELIN PAMOATE
     Indication: Prostate cancer
     Dosage: POWDER FOR PROLONGED-RELEASE SUSPENSION FOR INJECT: DRUG START DATE: 11-APR-2024; DRUG STOPPED: 11-A
     Route: 030
  3. TRELSTAR [Suspect]
     Active Substance: TRIPTORELIN PAMOATE
     Indication: Prostate cancer
     Dosage: POWDER FOR PROLONGED-RELEASE SUSPENSION FOR INJECT: DRUG START DATE: 11-JUL-2024; DRUG STOPPED: 11-J
     Route: 030
  4. TRELSTAR [Suspect]
     Active Substance: TRIPTORELIN PAMOATE
     Indication: Prostate cancer
     Dosage: POWDER FOR PROLONGED-RELEASE SUSPENSION FOR INJECT: DRUG START DATE: 11-OCT-2024; DRUG STOPPED: 11-O
     Route: 030
  5. TRELSTAR [Suspect]
     Active Substance: TRIPTORELIN PAMOATE
     Indication: Prostate cancer
     Dosage: POWDER FOR PROLONGED-RELEASE SUSPENSION FOR INJECT; DRUG START DATE: 05-JAN-2023; DRUG STOPPED: 05-J
     Route: 030
  6. TRELSTAR [Suspect]
     Active Substance: TRIPTORELIN PAMOATE
     Indication: Prostate cancer
     Dosage: POWDER FOR PROLONGED-RELEASE SUSPENSION FOR INJECT; DRUG START DATE: 05-OCT-2023; DRUG STOPPED: 05-O
     Route: 030
  7. TRELSTAR [Suspect]
     Active Substance: TRIPTORELIN PAMOATE
     Indication: Prostate cancer
     Dosage: POWDER FOR PROLONGED-RELEASE SUSPENSION FOR INJECT; DRUG START DATE: 06-APR-2023; DRUG STOPPED: 06-A
     Route: 030
  8. TRELSTAR [Suspect]
     Active Substance: TRIPTORELIN PAMOATE
     Indication: Prostate cancer
     Dosage: POWDER FOR PROLONGED-RELEASE SUSPENSION FOR INJECT; DRUG START DATE: 07-JUL-2023; DRUG STOPPED: 07-J
     Route: 030
  9. TRELSTAR [Suspect]
     Active Substance: TRIPTORELIN PAMOATE
     Indication: Prostate cancer
     Dosage: POWDER FOR PROLONGED-RELEASE SUSPENSION FOR INJECT; DRUG START DATE: 13-JAN-2025; DRUG STOPPED: 13-J
     Route: 030

REACTIONS (4)
  - Inappropriate schedule of product administration [Recovered/Resolved]
  - Stent placement [Recovered/Resolved]
  - Cardiac pacemaker insertion [Recovered/Resolved]
  - Angioplasty [Recovered/Resolved]

NARRATIVE: CASE EVENT DATE: 20230406
